FAERS Safety Report 11675595 (Version 1)
Quarter: 2015Q4

REPORT INFORMATION
  Report Type: Spontaneous
  Country: US (occurrence: US)
  Receive Date: 20151027
  Receipt Date: 20151027
  Transmission Date: 20160304
  Serious: No
  Sender: FDA-Public Use
  Company Number: US-ELI_LILLY_AND_COMPANY-US201007004178

PATIENT
  Sex: Female

DRUGS (1)
  1. FORTEO [Suspect]
     Active Substance: TERIPARATIDE
     Dosage: 20 MG, DAILY (1/D)
     Route: 058

REACTIONS (4)
  - Muscle spasms [Unknown]
  - Dizziness [Unknown]
  - Constipation [Unknown]
  - Pyrexia [Unknown]
